FAERS Safety Report 14577099 (Version 5)
Quarter: 2018Q3

REPORT INFORMATION
  Report Type: Report from Study
  Country: US (occurrence: US)
  Receive Date: 20180227
  Receipt Date: 20180912
  Transmission Date: 20181010
  Serious: Yes (Other)
  Sender: FDA-Public Use
  Company Number: US-BAYER-2017-238375

PATIENT
  Age: 78 Year
  Sex: Male

DRUGS (21)
  1. NEXAVAR [Suspect]
     Active Substance: SORAFENIB
     Indication: HEPATOCELLULAR CARCINOMA
     Dosage: 400 MG, BID
     Route: 048
  2. LEVOTHYROXINE SODIUM. [Concomitant]
     Active Substance: LEVOTHYROXINE SODIUM
  3. TRAMADOL HYDROCHLORIDE. [Concomitant]
     Active Substance: TRAMADOL HYDROCHLORIDE
  4. ALENDRONATE SODIUM. [Concomitant]
     Active Substance: ALENDRONATE SODIUM
  5. POTASSIUM CHLORIDE. [Concomitant]
     Active Substance: POTASSIUM CHLORIDE
  6. NEXAVAR [Suspect]
     Active Substance: SORAFENIB
     Indication: HEPATOCELLULAR CARCINOMA
     Dosage: 400 MG, BID
     Route: 048
     Dates: start: 20180101
  7. POLYETHYLENE GLYCOL 3350. [Concomitant]
     Active Substance: POLYETHYLENE GLYCOL 3350
  8. ZETIA [Concomitant]
     Active Substance: EZETIMIBE
  9. NEXAVAR [Suspect]
     Active Substance: SORAFENIB
     Indication: HEPATOCELLULAR CARCINOMA
     Dosage: 400 MG, BID
     Route: 048
  10. LEVODOPA [Concomitant]
     Active Substance: LEVODOPA
  11. AMLODIPINE BESYLATE. [Concomitant]
     Active Substance: AMLODIPINE BESYLATE
  12. LUMIGAN [Concomitant]
     Active Substance: BIMATOPROST
  13. NEXAVAR [Suspect]
     Active Substance: SORAFENIB
     Indication: HEPATOCELLULAR CARCINOMA
     Dosage: 400 MG, BID
     Route: 048
     Dates: start: 20171127
  14. CARBIDOPA. [Concomitant]
     Active Substance: CARBIDOPA
  15. GABAPENTIN. [Concomitant]
     Active Substance: GABAPENTIN
  16. GLIMEPIRIDE. [Concomitant]
     Active Substance: GLIMEPIRIDE
  17. PAROXETINE HYDROCHLORIDE. [Concomitant]
     Active Substance: PAROXETINE HYDROCHLORIDE
  18. NEXAVAR [Suspect]
     Active Substance: SORAFENIB
     Indication: HEPATOCELLULAR CARCINOMA
     Dosage: 400 MG, BID
     Route: 048
  19. CARVEDILOL. [Concomitant]
     Active Substance: CARVEDILOL
  20. JANUMET [Concomitant]
     Active Substance: METFORMIN HYDROCHLORIDE\SITAGLIPTIN PHOSPHATE
  21. TAMSULOSIN HYDROCHLORIDE. [Concomitant]
     Active Substance: TAMSULOSIN HYDROCHLORIDE

REACTIONS (23)
  - Head discomfort [None]
  - Dry mouth [Not Recovered/Not Resolved]
  - Pruritus generalised [None]
  - Palmar-plantar erythrodysaesthesia syndrome [Recovered/Resolved]
  - Toothache [Not Recovered/Not Resolved]
  - Gait inability [Not Recovered/Not Resolved]
  - Stomatitis [Not Recovered/Not Resolved]
  - Back pain [Not Recovered/Not Resolved]
  - Nausea [Not Recovered/Not Resolved]
  - Pain in extremity [Not Recovered/Not Resolved]
  - Fatigue [Not Recovered/Not Resolved]
  - Hyperkeratosis [Not Recovered/Not Resolved]
  - Pain [Not Recovered/Not Resolved]
  - Oral pain [Not Recovered/Not Resolved]
  - Palmar-plantar erythrodysaesthesia syndrome [Recovering/Resolving]
  - Diarrhoea [Recovered/Resolved]
  - Decreased appetite [Not Recovered/Not Resolved]
  - Palmar-plantar erythrodysaesthesia syndrome [Not Recovered/Not Resolved]
  - Alopecia [Not Recovered/Not Resolved]
  - Paraesthesia [None]
  - Gingival pain [Not Recovered/Not Resolved]
  - Mood altered [Not Recovered/Not Resolved]
  - Nausea [Recovered/Resolved]
